FAERS Safety Report 5059991-0 (Version None)
Quarter: 2006Q3

REPORT INFORMATION
  Report Type: 
  Country: None (occurrence: None)
  Receive Date: 20060724
  Receipt Date: 20060711
  Transmission Date: 20061208
  Serious: Yes (Death)
  Sender: FDA-Public Use
  Company Number: US-GLAXOSMITHKLINE-A0611717A

PATIENT
  Age: 52 Year
  Sex: Female

DRUGS (2)
  1. GOODY'S EXTRA STRENGTH HEADACHE POWDER [Suspect]
     Indication: HEADACHE
  2. NO CONCURRENT MEDICATION [Concomitant]

REACTIONS (5)
  - ANEURYSM RUPTURED [None]
  - DIZZINESS [None]
  - FEELING ABNORMAL [None]
  - INTRACRANIAL ANEURYSM [None]
  - LOSS OF CONSCIOUSNESS [None]
